FAERS Safety Report 9993534 (Version 2)
Quarter: 2014Q1

REPORT INFORMATION
  Report Type: Spontaneous
  Country: US (occurrence: US)
  Receive Date: 20140310
  Receipt Date: 20140317
  Transmission Date: 20141002
  Serious: Yes (Hospitalization, Other)
  Sender: FDA-Public Use
  Company Number: US-PFIZER INC-2014063563

PATIENT
  Age: 24 Year
  Sex: Male

DRUGS (12)
  1. EFFEXOR [Suspect]
     Dosage: UNK
     Dates: start: 2009
  2. LITHIUM CARBONATE [Suspect]
     Dosage: UNK
     Dates: start: 2009
  3. DAYQUIL [Suspect]
     Dosage: UNK
  4. NYQUIL [Suspect]
     Dosage: UNK
  5. ABILIFY [Suspect]
     Indication: DEPRESSION
     Dosage: 10 MG, UNK
  6. ABILIFY [Suspect]
     Indication: BIPOLAR DISORDER
     Dosage: 5 MG, UNK
  7. ABILIFY [Suspect]
     Dosage: 2 MG, DAILY
  8. ABILIFY [Suspect]
     Dosage: 1 MG, DAILY
  9. ABILIFY [Suspect]
     Dosage: UNK
     Route: 048
     Dates: start: 2009, end: 201309
  10. ABILIFY [Suspect]
     Dosage: 5 MG, UNK
  11. ABILIFY [Suspect]
     Indication: DEPRESSION
     Dosage: UNK
  12. ABILIFY [Suspect]
     Indication: BIPOLAR DISORDER

REACTIONS (21)
  - Mania [Unknown]
  - Respiratory tract infection [Unknown]
  - Pleurisy [Unknown]
  - Agitation [Unknown]
  - Poor quality sleep [Unknown]
  - Weight decreased [Unknown]
  - Decreased appetite [Unknown]
  - Throat irritation [Unknown]
  - Feeling abnormal [Unknown]
  - Chest pain [Unknown]
  - Stress [Unknown]
  - Confusional state [Unknown]
  - Tremor [Recovered/Resolved]
  - Hyperhidrosis [Unknown]
  - Weight increased [Recovered/Resolved]
  - Night sweats [Not Recovered/Not Resolved]
  - Irritability [Unknown]
  - Sedation [Unknown]
  - Fatigue [Unknown]
  - Impulsive behaviour [Unknown]
  - Restlessness [Unknown]
